FAERS Safety Report 8911247 (Version 1)
Quarter: 2012Q4

REPORT INFORMATION
  Report Type: 
  Country: US (occurrence: US)
  Receive Date: 20121115
  Receipt Date: 20121115
  Transmission Date: 20130627
  Serious: No
  Sender: FDA-Public Use
  Company Number: US-AMGEN-USASP2012026474

PATIENT
  Age: 59 Year
  Sex: Female

DRUGS (2)
  1. VECTIBIX [Suspect]
     Indication: COLORECTAL CANCER METASTATIC
     Dosage: UNK
  2. ANTIHYPERTENSIVES [Concomitant]

REACTIONS (4)
  - Facial pain [Unknown]
  - Eye pain [Unknown]
  - Urinary tract infection [Unknown]
  - Tooth infection [Unknown]
